FAERS Safety Report 7572241-6 (Version None)
Quarter: 2011Q2

REPORT INFORMATION
  Report Type: 
  Country: None (occurrence: None)
  Receive Date: 20110624
  Receipt Date: 20110613
  Transmission Date: 20111010
  Serious: Yes (Hospitalization)
  Sender: FDA-Public Use
  Company Number: PHHY2011CN53635

PATIENT
  Sex: Male

DRUGS (1)
  1. CARBAMAZEPINE [Suspect]
     Dosage: UNK
     Dates: start: 20101029

REACTIONS (21)
  - FALL [None]
  - RESPIRATORY RATE INCREASED [None]
  - ASPARTATE AMINOTRANSFERASE INCREASED [None]
  - COMA [None]
  - BLOOD CHLORIDE INCREASED [None]
  - BLOOD ALBUMIN INCREASED [None]
  - DYSPHORIA [None]
  - PUPILLARY REFLEX IMPAIRED [None]
  - TOXICITY TO VARIOUS AGENTS [None]
  - BLOOD CREATINE PHOSPHOKINASE INCREASED [None]
  - BLOOD LACTATE DEHYDROGENASE INCREASED [None]
  - INJURY [None]
  - NERVOUS SYSTEM DISORDER [None]
  - SYNCOPE [None]
  - NEUTROPHIL PERCENTAGE INCREASED [None]
  - UNRESPONSIVE TO STIMULI [None]
  - ALANINE AMINOTRANSFERASE INCREASED [None]
  - BLOOD UREA INCREASED [None]
  - WHITE BLOOD CELL COUNT INCREASED [None]
  - HAEMODIALYSIS [None]
  - SUICIDE ATTEMPT [None]
